FAERS Safety Report 6052110-3 (Version None)
Quarter: 2009Q1

REPORT INFORMATION
  Report Type: 
  Country: None (occurrence: None)
  Receive Date: 20090126
  Receipt Date: 20090119
  Transmission Date: 20090719
  Serious: Yes (Death)
  Sender: FDA-Public Use
  Company Number: US-B.I. PHARMACEUTICALS,INC./RIDGEFIELD-2009-DE-00749GD

PATIENT
  Age: 52 Year
  Sex: Female

DRUGS (7)
  1. CLONIDINE HCL [Suspect]
  2. FENTANYL CITRATE [Suspect]
     Route: 048
  3. FENTANYL CITRATE [Suspect]
     Route: 062
  4. METHADONE HCL [Suspect]
  5. OXYCODONE HCL [Suspect]
  6. PROMETHAZINE [Suspect]
  7. METOCLOPRAMIDE [Suspect]

REACTIONS (1)
  - DEATH [None]
